FAERS Safety Report 23282589 (Version 1)
Quarter: 2023Q4

REPORT INFORMATION
  Report Type: Spontaneous
  Country: US (occurrence: None)
  Receive Date: 20231208
  Receipt Date: 20231208
  Transmission Date: 20240110
  Serious: Yes (Life-Threatening, Hospitalization)
  Sender: FDA-Public Use
  Company Number: None

PATIENT
  Age: 4 Year
  Sex: Male
  Weight: 15.5 kg

DRUGS (1)
  1. CALASPARGASE PEGOL-MKNL [Suspect]
     Active Substance: CALASPARGASE PEGOL-MKNL
     Indication: Acute lymphocytic leukaemia
     Dosage: OTHER FREQUENCY : ONCE;?
     Route: 042
     Dates: start: 20230520, end: 20230520

REACTIONS (5)
  - Pancreatitis acute [None]
  - Respiratory distress [None]
  - Shock [None]
  - Pancreatitis haemorrhagic [None]
  - Infusion related reaction [None]

NARRATIVE: CASE EVENT DATE: 20230612
